FAERS Safety Report 8170243-2 (Version None)
Quarter: 2012Q1

REPORT INFORMATION
  Report Type: 
  Country: None (occurrence: None)
  Receive Date: 20120228
  Receipt Date: 20120223
  Transmission Date: 20120608
  Serious: Yes (Death, Other)
  Sender: FDA-Public Use
  Company Number: PHEH2011US011343

PATIENT
  Sex: Male

DRUGS (3)
  1. EXJADE [Suspect]
     Indication: IRON OVERLOAD
     Dosage: 500 MG, TID (2 TABLETS IN AM AND 1 TABLET IN PM)
     Route: 048
  2. ARANESP [Concomitant]
     Dosage: 500 MG, EVERY TWO WEEKS
     Route: 058
  3. EXJADE [Suspect]
     Dosage: 500 MG, TID
     Route: 048
     Dates: end: 20111208

REACTIONS (13)
  - CONTUSION [None]
  - DYSPNOEA [None]
  - NAUSEA [None]
  - EXERCISE TOLERANCE DECREASED [None]
  - NEOPLASM MALIGNANT [None]
  - BLOOD PRESSURE DIASTOLIC DECREASED [None]
  - FATIGUE [None]
  - MEMORY IMPAIRMENT [None]
  - LEUKAEMIA [None]
  - CONJUNCTIVAL PALLOR [None]
  - PALLOR [None]
  - HEADACHE [None]
  - PAIN IN EXTREMITY [None]
